FAERS Safety Report 16967318 (Version 2)
Quarter: 2019Q4

REPORT INFORMATION
  Report Type: Report from Study
  Country: US (occurrence: US)
  Receive Date: 20191028
  Receipt Date: 20191115
  Transmission Date: 20200122
  Serious: Yes (Other)
  Sender: FDA-Public Use
  Company Number: US-SHIRE-US201935921

PATIENT
  Age: 45 Year
  Sex: Female

DRUGS (2)
  1. GATTEX [Suspect]
     Active Substance: TEDUGLUTIDE\WATER
     Dosage: 2.84 MILLIGRAM, 1X/DAY:QD
     Route: 058
     Dates: start: 20181017
  2. GATTEX [Suspect]
     Active Substance: TEDUGLUTIDE\WATER
     Indication: SHORT-BOWEL SYNDROME
     Dosage: 2.84 MILLIGRAM, 1X/DAY:QD
     Route: 058
     Dates: start: 20181018

REACTIONS (5)
  - Infusion site erythema [Unknown]
  - Weight decreased [Unknown]
  - Infusion site pain [Unknown]
  - Infusion site discomfort [Unknown]
  - Vascular device infection [Unknown]

NARRATIVE: CASE EVENT DATE: 20191001
